FAERS Safety Report 17531632 (Version 1)
Quarter: 2020Q1

REPORT INFORMATION
  Report Type: Spontaneous
  Country: US (occurrence: US)
  Receive Date: 20200311
  Receipt Date: 20200311
  Transmission Date: 20200409
  Serious: Yes (Hospitalization)
  Sender: FDA-Public Use
  Company Number: None

PATIENT
  Age: 16 Year
  Sex: Male
  Weight: 63 kg

DRUGS (1)
  1. DOXYCYCLINE. [Suspect]
     Active Substance: DOXYCYCLINE
     Indication: ACNE
     Dosage: ?          QUANTITY:1 CAPSULE(S);?
     Route: 048
     Dates: start: 20200124, end: 20200202

REACTIONS (11)
  - Panic attack [None]
  - Dyspnoea [None]
  - Paranoia [None]
  - Intentional self-injury [None]
  - Suicidal ideation [None]
  - Product complaint [None]
  - Tremor [None]
  - Depression [None]
  - Suicide attempt [None]
  - Anxiety [None]
  - Social avoidant behaviour [None]

NARRATIVE: CASE EVENT DATE: 20200202
